FAERS Safety Report 20230400 (Version 2)
Quarter: 2022Q1

REPORT INFORMATION
  Report Type: Spontaneous
  Country: US (occurrence: None)
  Receive Date: 20211227
  Receipt Date: 20220211
  Transmission Date: 20220423
  Serious: No
  Sender: FDA-Public Use
  Company Number: 2021A853662

PATIENT
  Age: 838 Month
  Sex: Female
  Weight: 70.8 kg

DRUGS (1)
  1. BYDUREON [Suspect]
     Active Substance: EXENATIDE
     Indication: Type 2 diabetes mellitus
     Route: 058
     Dates: start: 202110, end: 202111

REACTIONS (6)
  - Injection site mass [Not Recovered/Not Resolved]
  - Injection site bruising [Unknown]
  - Weight decreased [Unknown]
  - Injection site pain [Recovered/Resolved]
  - Product dose omission issue [Unknown]
  - Product packaging quantity issue [Unknown]

NARRATIVE: CASE EVENT DATE: 20211001
